FAERS Safety Report 8429589 (Version 3)
Quarter: 2012Q4

REPORT INFORMATION
  Report Type: 
  Country: FR (occurrence: FR)
  Receive Date: 20120227
  Receipt Date: 20120831
  Transmission Date: 20130627
  Serious: Yes (Life-Threatening, Hospitalization)
  Sender: FDA-Public Use
  Company Number: FR-B.I. PHARMACEUTICALS,INC./RIDGEFIELD-2012-FF-00221FF

PATIENT
  Age: 52 Year
  Sex: Female

DRUGS (5)
  1. MOBIC [Suspect]
     Indication: INTERCOSTAL NEURALGIA
     Route: 030
     Dates: start: 20111119, end: 20111124
  2. MOBIC [Suspect]
     Route: 030
     Dates: start: 20111205, end: 20111210
  3. CEBUTID [Suspect]
     Indication: INTERCOSTAL NEURALGIA
     Route: 048
     Dates: start: 20111211, end: 20111217
  4. COOLMETEC [Concomitant]
     Route: 048
  5. TEMESTA [Concomitant]
     Route: 048

REACTIONS (7)
  - Drug reaction with eosinophilia and systemic symptoms [Recovered/Resolved]
  - Nausea [Recovered/Resolved]
  - Vomiting [Recovered/Resolved]
  - Hyperthermia [Recovered/Resolved]
  - Hypotension [Recovered/Resolved]
  - Renal failure acute [Recovered/Resolved]
  - Hepatocellular injury [Recovered/Resolved]
